FAERS Safety Report 25075461 (Version 1)
Quarter: 2025Q1

REPORT INFORMATION
  Report Type: Spontaneous
  Country: IT (occurrence: IT)
  Receive Date: 20250313
  Receipt Date: 20250313
  Transmission Date: 20250409
  Serious: Yes (Death, Other)
  Sender: DAIICHI
  Company Number: IT-DAIICHI SANKYO, INC.-DS-2025-129143-IT

PATIENT
  Sex: Female

DRUGS (1)
  1. TRASTUZUMAB DERUXTECAN [Suspect]
     Active Substance: TRASTUZUMAB DERUXTECAN
     Indication: Breast cancer metastatic
     Route: 065

REACTIONS (4)
  - Bronchopulmonary aspergillosis [Fatal]
  - Pneumocystis jirovecii pneumonia [Fatal]
  - Interstitial lung disease [Fatal]
  - Cerebral disorder [Unknown]
